FAERS Safety Report 18623947 (Version 2)
Quarter: 2020Q4

REPORT INFORMATION
  Report Type: Report from Study
  Country: US (occurrence: US)
  Receive Date: 20201216
  Receipt Date: 20201218
  Transmission Date: 20210114
  Serious: Yes (Other)
  Sender: FDA-Public Use
  Company Number: US-TAKEDA-2020TUS057496

PATIENT
  Sex: Male

DRUGS (2)
  1. ELAPRASE [Suspect]
     Active Substance: IDURSULFASE
     Indication: MUCOPOLYSACCHARIDOSIS II
     Dosage: UNK UNK, 1/WEEK
     Route: 042
     Dates: start: 20201126
  2. ELAPRASE [Suspect]
     Active Substance: IDURSULFASE
     Dosage: UNK
     Route: 042
     Dates: start: 20061129

REACTIONS (2)
  - COVID-19 [Recovered/Resolved]
  - Product dose omission issue [Recovered/Resolved]
